FAERS Safety Report 25272668 (Version 2)
Quarter: 2025Q3

REPORT INFORMATION
  Report Type: Report from Study
  Country: US (occurrence: US)
  Receive Date: 20250506
  Receipt Date: 20250721
  Transmission Date: 20251021
  Serious: Yes (Other)
  Sender: ABBVIE
  Company Number: US-ABBVIE-6264442

PATIENT
  Age: 72 Year
  Sex: Male

DRUGS (2)
  1. CREON [Suspect]
     Active Substance: PANCRELIPASE AMYLASE\PANCRELIPASE LIPASE\PANCRELIPASE PROTEASE
     Indication: Pancreatic failure
     Route: 048
     Dates: start: 20241022
  2. CREON [Suspect]
     Active Substance: PANCRELIPASE AMYLASE\PANCRELIPASE LIPASE\PANCRELIPASE PROTEASE
     Indication: Pancreatic failure
     Route: 048

REACTIONS (7)
  - Pancreatic carcinoma [Not Recovered/Not Resolved]
  - Cardiac disorder [Unknown]
  - Sepsis [Unknown]
  - Fatigue [Not Recovered/Not Resolved]
  - Asthenia [Not Recovered/Not Resolved]
  - Weight gain poor [Not Recovered/Not Resolved]
  - Muscle atrophy [Not Recovered/Not Resolved]

NARRATIVE: CASE EVENT DATE: 20240101
